FAERS Safety Report 8538890-3 (Version None)
Quarter: 2012Q3

REPORT INFORMATION
  Report Type: 
  Country: None (occurrence: None)
  Receive Date: 20120713
  Receipt Date: 20120701
  Transmission Date: 20120928
  Serious: Yes (Death)
  Sender: FDA-Public Use
  Company Number: 1324523

PATIENT
  Sex: Female

DRUGS (4)
  1. VERSED [Concomitant]
  2. PRECEDEX [Suspect]
     Indication: PRODUCT USED FOR UNKNOWN INDICATION
  3. FENTANYL CITRATE [Concomitant]
  4. (OXYGEN) [Concomitant]

REACTIONS (7)
  - AGITATION [None]
  - BRADYCARDIA [None]
  - CONFUSIONAL STATE [None]
  - ANAEMIA [None]
  - MENTAL STATUS CHANGES [None]
  - RESPIRATORY RATE INCREASED [None]
  - OXYGEN SATURATION DECREASED [None]
